FAERS Safety Report 4600968-4 (Version None)
Quarter: 2005Q1

REPORT INFORMATION
  Report Type: 
  Country: None (occurrence: None)
  Receive Date: 20050204
  Receipt Date: 20040927
  Transmission Date: 20050727
  Serious: Yes (Hospitalization, Other)
  Sender: FDA-Public Use
  Company Number: USA040771814

PATIENT
  Age: 65 Year
  Sex: Female

DRUGS (3)
  1. EVISTA [Suspect]
     Indication: OSTEOPENIA
  2. EVISTA [Suspect]
     Indication: OSTEOPOROSIS PROPHYLAXIS
  3. EVISTA [Suspect]
     Indication: PROPHYLAXIS

REACTIONS (2)
  - BODY HEIGHT DECREASED [None]
  - THROMBOSIS [None]
